FAERS Safety Report 11716618 (Version 1)
Quarter: 2015Q4

REPORT INFORMATION
  Report Type: Spontaneous
  Country: US (occurrence: US)
  Receive Date: 20151109
  Receipt Date: 20151109
  Transmission Date: 20160304
  Serious: No
  Sender: FDA-Public Use
  Company Number: US-APOPHARMA USA, INC.-2013AP002928

PATIENT
  Sex: Male
  Weight: 101 kg

DRUGS (3)
  1. FERRIPROX [Suspect]
     Active Substance: DEFERIPRONE
     Indication: HEREDITARY HAEMOCHROMATOSIS
     Route: 048
     Dates: start: 20120915
  2. FERRIPROX [Suspect]
     Active Substance: DEFERIPRONE
     Indication: MYELODYSPLASTIC SYNDROME
     Dates: end: 20130211
  3. EXJADE [Concomitant]
     Active Substance: DEFERASIROX

REACTIONS (1)
  - Drug ineffective [Unknown]
